FAERS Safety Report 15488804 (Version 1)
Quarter: 2018Q4

REPORT INFORMATION
  Report Type: Report from Study
  Country: US (occurrence: US)
  Receive Date: 20181011
  Receipt Date: 20181011
  Transmission Date: 20190205
  Serious: Yes (Other)
  Sender: FDA-Public Use
  Company Number: US-BAYER-2018-170728

PATIENT
  Age: 62 Year
  Sex: Male

DRUGS (1)
  1. STIVARGA [Suspect]
     Active Substance: REGORAFENIB
     Indication: HEPATOCELLULAR CARCINOMA
     Dosage: 120 MG, QD
     Route: 048
     Dates: start: 20180828, end: 201809

REACTIONS (16)
  - Back pain [Recovering/Resolving]
  - Product dose omission [None]
  - Nausea [None]
  - Stomatitis [Recovering/Resolving]
  - Acute kidney injury [Recovering/Resolving]
  - Aphonia [None]
  - Oral pain [Recovering/Resolving]
  - Product use issue [None]
  - Tongue blistering [None]
  - Fatigue [None]
  - Dysphonia [Recovering/Resolving]
  - Oral mucosal blistering [None]
  - Noninfective gingivitis [Recovering/Resolving]
  - Gingival blister [None]
  - Oral pain [None]
  - Off label use [None]

NARRATIVE: CASE EVENT DATE: 2018
